FAERS Safety Report 5722442-4 (Version None)
Quarter: 2008Q2

REPORT INFORMATION
  Report Type: 
  Country: None (occurrence: None)
  Receive Date: 20080429
  Receipt Date: 20070910
  Transmission Date: 20081010
  Serious: No
  Sender: FDA-Public Use
  Company Number: US-ASTRAZENECA-2007UW21269

PATIENT
  Age: 78 Year
  Sex: Female
  Weight: 72.6 kg

DRUGS (11)
  1. NEXIUM [Suspect]
     Route: 048
  2. PULMICORT RESPULES [Suspect]
     Indication: EMPHYSEMA
     Route: 055
     Dates: start: 20070801
  3. XOPENEX [Concomitant]
  4. CRESTOR [Concomitant]
  5. SYNTHROID [Concomitant]
  6. LANOXIN [Concomitant]
  7. SPIRONOLACTONE [Concomitant]
  8. ACTOS [Concomitant]
  9. TOPROL-XL [Concomitant]
  10. ALTACE [Concomitant]
  11. SPIRIVA [Concomitant]

REACTIONS (1)
  - RHINORRHOEA [None]
